FAERS Safety Report 23336713 (Version 2)
Quarter: 2024Q1

REPORT INFORMATION
  Report Type: Spontaneous
  Country: US (occurrence: US)
  Receive Date: 20231226
  Receipt Date: 20240101
  Transmission Date: 20240410
  Serious: Yes (Hospitalization, Other)
  Sender: FDA-Public Use
  Company Number: US-BIOVITRUM-2023-US-021108

PATIENT
  Age: 5 Month
  Sex: Male
  Weight: 6.35 kg

DRUGS (2)
  1. SYNAGIS [Suspect]
     Active Substance: PALIVIZUMAB
     Indication: Premature baby
     Dosage: ONCE A MONTH
     Route: 030
  2. SYNAGIS [Suspect]
     Active Substance: PALIVIZUMAB
     Dosage: MONTHLY, SYNAGIS 100 MG SDV/INJ PF 1 ML 1S; SYNAGIS 50 MG SDV/INJ PF 0.5 ML 1S
     Dates: start: 20231120

REACTIONS (1)
  - Pneumonia [Unknown]
